FAERS Safety Report 7993235-2 (Version None)
Quarter: 2011Q4

REPORT INFORMATION
  Report Type: 
  Country: None (occurrence: None)
  Receive Date: 20111219
  Receipt Date: 20110725
  Transmission Date: 20120403
  Serious: No
  Sender: FDA-Public Use
  Company Number: US-ASTRAZENECA-2011SE44651

PATIENT
  Age: 52 Year
  Sex: Male

DRUGS (6)
  1. ALPRAZOLAM [Concomitant]
  2. CRESTOR [Suspect]
     Route: 048
  3. PREVASTIN [Concomitant]
  4. ACTIFED [Concomitant]
  5. NASONEX [Concomitant]
  6. VENLAFAXINE [Concomitant]

REACTIONS (3)
  - BLOOD CHOLESTEROL INCREASED [None]
  - DRUG DOSE OMISSION [None]
  - DRUG INEFFECTIVE [None]
